FAERS Safety Report 19120629 (Version 1)
Quarter: 2021Q2

REPORT INFORMATION
  Report Type: Spontaneous
  Country: US (occurrence: US)
  Receive Date: 20210412
  Receipt Date: 20210412
  Transmission Date: 20210717
  Serious: Yes (Hospitalization)
  Sender: FDA-Public Use
  Company Number: None

PATIENT
  Age: 52 Year
  Sex: Male
  Weight: 81 kg

DRUGS (1)
  1. ALOGLIPTIN (ALOGLIPTIN 25MG TAB) [Suspect]
     Active Substance: ALOGLIPTIN
     Indication: DIABETES MELLITUS
     Route: 048
     Dates: start: 20200430, end: 20210126

REACTIONS (3)
  - Pancreatitis [None]
  - Glycosylated haemoglobin increased [None]
  - Blood glucose fluctuation [None]

NARRATIVE: CASE EVENT DATE: 20210126
